FAERS Safety Report 19154494 (Version 1)
Quarter: 2021Q2

REPORT INFORMATION
  Report Type: Spontaneous
  Country: CA (occurrence: CA)
  Receive Date: 20210419
  Receipt Date: 20210419
  Transmission Date: 20210717
  Serious: Yes (Death)
  Sender: FDA-Public Use
  Company Number: CA-PFIZER INC-2021259018

PATIENT
  Age: 79 Year
  Sex: Male

DRUGS (2)
  1. DAURISMO [Suspect]
     Active Substance: GLASDEGIB
     Dosage: 100 MG, 1X/DAY
     Route: 048
     Dates: start: 20201102
  2. LACOSAMIDE. [Suspect]
     Active Substance: LACOSAMIDE
     Dosage: 150 MG T1T, 2X/DAY
     Route: 048

REACTIONS (1)
  - Death [Fatal]
